FAERS Safety Report 8659900 (Version 4)
Quarter: 2012Q4

REPORT INFORMATION
  Report Type: 
  Country: US (occurrence: US)
  Receive Date: 20120711
  Receipt Date: 20120921
  Transmission Date: 20130627
  Serious: Yes (Hospitalization, Other)
  Sender: FDA-Public Use
  Company Number: US-AMGEN-USASP2012042037

PATIENT
  Age: 47 Year
  Sex: Male

DRUGS (3)
  1. EPOGEN [Suspect]
     Indication: ANAEMIA
     Dosage: UNK
  2. EPOGEN [Suspect]
     Indication: RENAL FAILURE CHRONIC
  3. EPOGEN [Suspect]
     Indication: HAEMODIALYSIS

REACTIONS (4)
  - Hospitalisation [Not Recovered/Not Resolved]
  - Haemoglobin decreased [Unknown]
  - Asthenia [Unknown]
  - Aplasia pure red cell [Unknown]
